FAERS Safety Report 16774240 (Version 4)
Quarter: 2019Q4

REPORT INFORMATION
  Report Type: Spontaneous
  Country: JP (occurrence: JP)
  Receive Date: 20190905
  Receipt Date: 20191007
  Transmission Date: 20200122
  Serious: No
  Sender: FDA-Public Use
  Company Number: JP-B.I. PHARMACEUTICALS,INC./RIDGEFIELD-2019-NB-100422

PATIENT
  Age: 74 Year
  Sex: Female
  Weight: 71.9 kg

DRUGS (14)
  1. APIDRA [Concomitant]
     Active Substance: INSULIN GLULISINE
     Indication: TYPE 2 DIABETES MELLITUS
     Route: 058
  2. MAGMITT [Concomitant]
     Active Substance: MAGNESIUM OXIDE
     Indication: PRODUCT USED FOR UNKNOWN INDICATION
     Route: 048
     Dates: start: 20170110
  3. JARDIANCE [Suspect]
     Active Substance: EMPAGLIFLOZIN
     Indication: TYPE 2 DIABETES MELLITUS
     Route: 048
     Dates: start: 20190222, end: 20190726
  4. ZACRAS [Concomitant]
     Active Substance: AMLODIPINE BESYLATE\AZILSARTAN
     Indication: HYPERTENSION
     Route: 048
     Dates: start: 20180117, end: 20190517
  5. CRESTOR OD [Concomitant]
     Active Substance: ROSUVASTATIN CALCIUM
     Indication: DYSLIPIDAEMIA
     Route: 048
     Dates: start: 20170628
  6. VOGLIBOSE [Concomitant]
     Active Substance: VOGLIBOSE
     Indication: TYPE 2 DIABETES MELLITUS
     Route: 048
     Dates: start: 20190316
  7. TRAZENTA [Concomitant]
     Active Substance: LINAGLIPTIN
     Indication: TYPE 2 DIABETES MELLITUS
     Route: 048
     Dates: start: 20190222
  8. CORTRIL [Concomitant]
     Active Substance: HYDROCORTISONE
     Indication: CUSHING^S SYNDROME
     Route: 048
     Dates: start: 20190129
  9. URSODEOXYCHOLIC ACID [Concomitant]
     Active Substance: URSODIOL
     Indication: PRODUCT USED FOR UNKNOWN INDICATION
     Route: 048
     Dates: start: 20170913, end: 20190621
  10. LANTUS XR [Concomitant]
     Active Substance: INSULIN GLARGINE
     Indication: TYPE 2 DIABETES MELLITUS
     Route: 058
     Dates: start: 20170112
  11. METFORMIN HYDROCHLORIDE. [Concomitant]
     Active Substance: METFORMIN HYDROCHLORIDE
     Indication: TYPE 2 DIABETES MELLITUS
     Route: 048
  12. FEBURIC [Concomitant]
     Active Substance: FEBUXOSTAT
     Indication: HYPERURICAEMIA
     Route: 048
     Dates: start: 20170317
  13. FUROSEMIDE. [Concomitant]
     Active Substance: FUROSEMIDE
     Indication: HYPERTENSION
     Route: 048
     Dates: start: 20181130
  14. TRESIBA [Concomitant]
     Active Substance: INSULIN DEGLUDEC
     Indication: TYPE 2 DIABETES MELLITUS
     Route: 058

REACTIONS (1)
  - Renal impairment [Recovering/Resolving]

NARRATIVE: CASE EVENT DATE: 20190419
